FAERS Safety Report 6069456-5 (Version None)
Quarter: 2009Q1

REPORT INFORMATION
  Report Type: 
  Country: None (occurrence: None)
  Receive Date: 20090206
  Receipt Date: 20090126
  Transmission Date: 20090719
  Serious: Yes (Other)
  Sender: FDA-Public Use
  Company Number: US-ELI_LILLY_AND_COMPANY-US200811004236

PATIENT
  Sex: Female

DRUGS (1)
  1. FORTEO [Suspect]
     Dosage: UNK, UNK

REACTIONS (3)
  - BONE DENSITY DECREASED [None]
  - CARDIAC PACEMAKER INSERTION [None]
  - GENERAL PHYSICAL HEALTH DETERIORATION [None]
